FAERS Safety Report 24466464 (Version 1)
Quarter: 2024Q4

REPORT INFORMATION
  Report Type: Report from Study
  Country: US (occurrence: US)
  Receive Date: 20241018
  Receipt Date: 20241018
  Transmission Date: 20250115
  Serious: No
  Sender: ROCHE
  Company Number: US-ROCHE-3540358

PATIENT
  Age: 73 Year
  Sex: Female
  Weight: 65.77 kg

DRUGS (20)
  1. XOLAIR [Suspect]
     Active Substance: OMALIZUMAB
     Indication: Asthma
     Route: 058
  2. XOLAIR [Suspect]
     Active Substance: OMALIZUMAB
     Indication: Asthma
     Route: 058
  3. NIRAVAM [Concomitant]
     Active Substance: ALPRAZOLAM
  4. ALBUTEROL SULFATE [Concomitant]
     Active Substance: ALBUTEROL SULFATE
  5. ZITHROMAX [Concomitant]
     Active Substance: AZITHROMYCIN DIHYDRATE
  6. CELEXA [Concomitant]
     Active Substance: CITALOPRAM HYDROBROMIDE
  7. CIPRO [Concomitant]
     Active Substance: CIPROFLOXACIN HYDROCHLORIDE
  8. EPIPEN [Concomitant]
     Active Substance: EPINEPHRINE
  9. VITAMIN B12 [Concomitant]
     Active Substance: CYANOCOBALAMIN
  10. ZETIA [Concomitant]
     Active Substance: EZETIMIBE
  11. FLONASE [Concomitant]
     Active Substance: FLUTICASONE PROPIONATE
  12. LEVAQUIN [Concomitant]
     Active Substance: LEVOFLOXACIN
  13. COZAAR [Concomitant]
     Active Substance: LOSARTAN POTASSIUM
  14. METFORMIN [Concomitant]
     Active Substance: METFORMIN HYDROCHLORIDE
  15. FLAGYL [Concomitant]
     Active Substance: METRONIDAZOLE\METRONIDAZOLE HYDROCHLORIDE
  16. SINGULAIR [Concomitant]
     Active Substance: MONTELUKAST SODIUM
  17. NITROSTAT [Concomitant]
     Active Substance: NITROGLYCERIN
  18. DELTASONE [Concomitant]
     Active Substance: PREDNISONE
  19. XARELTO [Concomitant]
     Active Substance: RIVAROXABAN
  20. CRESTOR [Concomitant]
     Active Substance: ROSUVASTATIN CALCIUM

REACTIONS (1)
  - COVID-19 [Recovered/Resolved]

NARRATIVE: CASE EVENT DATE: 20210101
